FAERS Safety Report 15278050 (Version 1)
Quarter: 2018Q3

REPORT INFORMATION
  Report Type: Spontaneous
  Country: CA (occurrence: CA)
  Receive Date: 20180814
  Receipt Date: 20180814
  Transmission Date: 20181010
  Serious: Yes (Other)
  Sender: FDA-Public Use
  Company Number: CA-TEVA-2018-CA-943442

PATIENT
  Age: 4 Decade
  Sex: Male

DRUGS (7)
  1. TACROLIMUS. [Suspect]
     Active Substance: TACROLIMUS
     Indication: IMMUNOSUPPRESSANT DRUG THERAPY
     Dosage: TO MAINTAIN A LEVEL OF 6 TO 8 MICROG/L
     Route: 065
  2. THYMOGLOBULIN [Suspect]
     Active Substance: LAPINE T-LYMPHOCYTE IMMUNE GLOBULIN
     Indication: TRANSPLANT REJECTION
     Route: 065
  3. PREDNISONE. [Suspect]
     Active Substance: PREDNISONE
     Indication: IMMUNOSUPPRESSANT DRUG THERAPY
     Route: 065
  4. MYCOPHENOLATE MOFETIL. [Suspect]
     Active Substance: MYCOPHENOLATE MOFETIL
     Indication: IMMUNOSUPPRESSANT DRUG THERAPY
     Route: 065
  5. RITUXIMAB. [Suspect]
     Active Substance: RITUXIMAB
     Indication: TRANSPLANT REJECTION
     Route: 065
  6. IMMUNOGLOBULIN [Concomitant]
     Indication: TRANSPLANT REJECTION
     Route: 042
  7. BASILIXIMAB [Suspect]
     Active Substance: BASILIXIMAB
     Indication: IMMUNOSUPPRESSANT DRUG THERAPY
     Dosage: TWO DOSES
     Route: 065

REACTIONS (5)
  - Chronic allograft nephropathy [Unknown]
  - Bacterial infection [Unknown]
  - Tubulointerstitial nephritis [Unknown]
  - Pneumonia cytomegaloviral [Unknown]
  - Transplant rejection [Unknown]
